FAERS Safety Report 6678601-X (Version None)
Quarter: 2010Q2

REPORT INFORMATION
  Report Type: 
  Country: None (occurrence: None)
  Receive Date: 20100413
  Receipt Date: 20100401
  Transmission Date: 20101027
  Serious: Yes (Life-Threatening, Hospitalization)
  Sender: FDA-Public Use
  Company Number: US-JNJFOC-20100400855

PATIENT
  Sex: Female
  Weight: 88.45 kg

DRUGS (3)
  1. EXTRA STRENGTH TYLENOL PM [Suspect]
     Indication: DRUG USE FOR UNKNOWN INDICATION
     Dosage: 15-20 CAPSULES
     Route: 048
  2. STUDY MEDICATION [Concomitant]
     Indication: DEPRESSION
     Route: 048
  3. YAZ [Concomitant]
     Indication: CONTRACEPTION

REACTIONS (5)
  - DIZZINESS [None]
  - INTENTIONAL OVERDOSE [None]
  - NAUSEA [None]
  - SOMNOLENCE [None]
  - SUICIDE ATTEMPT [None]
